FAERS Safety Report 18713053 (Version 1)
Quarter: 2021Q1

REPORT INFORMATION
  Report Type: Spontaneous
  Country: IT (occurrence: IT)
  Receive Date: 20210107
  Receipt Date: 20210107
  Transmission Date: 20210419
  Serious: Yes (Other)
  Sender: FDA-Public Use
  Company Number: IT-SA-2021SA005204

PATIENT

DRUGS (2)
  1. LEMTRADA [Suspect]
     Active Substance: ALEMTUZUMAB
     Indication: MULTIPLE SCLEROSIS
     Dosage: UNK
     Route: 042
     Dates: start: 20200302, end: 20200304
  2. LEMTRADA [Suspect]
     Active Substance: ALEMTUZUMAB
     Dosage: UNK
     Route: 042
     Dates: start: 20190129, end: 20190201

REACTIONS (5)
  - Pyrexia [Unknown]
  - Lymphopenia [Unknown]
  - SARS-CoV-2 test positive [Unknown]
  - Cough [Unknown]
  - Leukopenia [Unknown]

NARRATIVE: CASE EVENT DATE: 20201218
